FAERS Safety Report 8293584-7 (Version None)
Quarter: 2012Q2

REPORT INFORMATION
  Report Type: 
  Country: None (occurrence: None)
  Receive Date: 20120418
  Receipt Date: 20120409
  Transmission Date: 20120825
  Serious: No
  Sender: FDA-Public Use
  Company Number: US-BIOGENIDEC-2012BI008722

PATIENT
  Sex: Female

DRUGS (3)
  1. TYSABRI [Suspect]
     Indication: MULTIPLE SCLEROSIS
     Route: 042
     Dates: start: 20050101, end: 20050101
  2. AVONEX [Concomitant]
     Indication: MULTIPLE SCLEROSIS
     Route: 030
     Dates: start: 20010720
  3. TYSABRI [Suspect]
     Route: 042
     Dates: start: 20120301

REACTIONS (8)
  - JOINT SWELLING [None]
  - VOMITING [None]
  - FLUSHING [None]
  - PALPITATIONS [None]
  - HEADACHE [None]
  - NAUSEA [None]
  - ARTHRITIS [None]
  - ARTHRALGIA [None]
